FAERS Safety Report 22924798 (Version 2)
Quarter: 2023Q4

REPORT INFORMATION
  Report Type: Spontaneous
  Country: US (occurrence: US)
  Receive Date: 20230908
  Receipt Date: 20231027
  Transmission Date: 20240110
  Serious: Yes (Other)
  Sender: FDA-Public Use
  Company Number: US-BRISTOL-MYERS SQUIBB COMPANY-2023-126533

PATIENT
  Age: 79 Year
  Sex: Female

DRUGS (1)
  1. IDHIFA [Suspect]
     Active Substance: ENASIDENIB MESYLATE
     Indication: Product used for unknown indication
     Dosage: DOSE : 1 TABLET;     FREQ : ONCE DAILY
     Route: 048

REACTIONS (2)
  - Ophthalmic herpes zoster [Recovered/Resolved]
  - Neuralgia [Unknown]
